FAERS Safety Report 6674285-5 (Version None)
Quarter: 2010Q2

REPORT INFORMATION
  Report Type: 
  Country: None (occurrence: None)
  Receive Date: 20100409
  Receipt Date: 20100330
  Transmission Date: 20101027
  Serious: Yes (Other)
  Sender: FDA-Public Use
  Company Number: US-JNJFOC-20061204407

PATIENT
  Sex: Female
  Weight: 92.53 kg

DRUGS (1)
  1. ORTHO EVRA [Suspect]
     Indication: CONTRACEPTION
     Route: 062

REACTIONS (10)
  - ACTIVATED PROTEIN C RESISTANCE TEST POSITIVE [None]
  - ANTITHROMBIN III DECREASED [None]
  - ATELECTASIS [None]
  - HYPOVOLAEMIA [None]
  - OFF LABEL USE [None]
  - PLEURAL EFFUSION [None]
  - PNEUMONIA [None]
  - PROTEIN S DECREASED [None]
  - PULMONARY EMBOLISM [None]
  - URINARY TRACT INFECTION [None]
